FAERS Safety Report 5281053-8 (Version None)
Quarter: 2007Q1

REPORT INFORMATION
  Report Type: 
  Country: None (occurrence: None)
  Receive Date: 20061229
  Receipt Date: 20060815
  Transmission Date: 20070707
  Serious: Yes (Other)
  Sender: FDA-Public Use
  Company Number: 2006UW16297

PATIENT
  Age: 79 Year
  Sex: Female
  Weight: 68.946 kg

DRUGS (8)
  1. CRESTOR [Suspect]
     Indication: BLOOD CHOLESTEROL INCREASED
     Dosage: 5 MG DAILY PO
     Route: 048
     Dates: start: 20060701
  2. CENTRUM SILVER [Concomitant]
  3. NAPROXEN [Concomitant]
  4. AMARYL [Concomitant]
  5. LANTUS [Concomitant]
  6. DIOVAN [Concomitant]
  7. VITAMIN B-12 [Concomitant]
  8. ASPIRIN [Concomitant]

REACTIONS (2)
  - ALOPECIA [None]
  - HEADACHE [None]
